FAERS Safety Report 24051303 (Version 1)
Quarter: 2024Q3

REPORT INFORMATION
  Report Type: Spontaneous
  Country: US (occurrence: US)
  Receive Date: 20240704
  Receipt Date: 20240704
  Transmission Date: 20241017
  Serious: No
  Sender: SANOFI AVENTIS
  Company Number: US-SA-SAC20240625000455

PATIENT
  Age: 45 Year
  Sex: Female

DRUGS (1)
  1. DUPIXENT [Suspect]
     Active Substance: DUPILUMAB
     Indication: Eosinophilic oesophagitis
     Dosage: 300 MG;QW
     Route: 058
     Dates: start: 202310

REACTIONS (13)
  - Joint swelling [Unknown]
  - Musculoskeletal stiffness [Unknown]
  - Paraesthesia [Unknown]
  - Fatigue [Unknown]
  - Headache [Unknown]
  - Skin swelling [Unknown]
  - Hypoaesthesia [Unknown]
  - Myalgia [Unknown]
  - Oropharyngeal pain [Unknown]
  - Erythema [Unknown]
  - Eye irritation [Unknown]
  - Arthralgia [Unknown]
  - Rash [Unknown]
